FAERS Safety Report 25165962 (Version 2)
Quarter: 2025Q2

REPORT INFORMATION
  Report Type: Spontaneous
  Country: DE (occurrence: DE)
  Receive Date: 20250407
  Receipt Date: 20250420
  Transmission Date: 20250717
  Serious: Yes (Hospitalization)
  Sender: AUROBINDO
  Company Number: DE-TEVA-VS-3312348

PATIENT
  Age: 35 Year
  Sex: Female

DRUGS (2)
  1. TOPIRAMATE [Suspect]
     Active Substance: TOPIRAMATE
     Indication: Migraine
     Route: 065
     Dates: start: 201910
  2. ERENUMAB [Suspect]
     Active Substance: ERENUMAB
     Indication: Migraine
     Route: 058
     Dates: start: 202005

REACTIONS (6)
  - Migraine [Unknown]
  - Depressed mood [Not Recovered/Not Resolved]
  - Sleep disorder [Not Recovered/Not Resolved]
  - Frustration tolerance decreased [Unknown]
  - Fatigue [Unknown]
  - Listless [Unknown]

NARRATIVE: CASE EVENT DATE: 20200601
